FAERS Safety Report 16824631 (Version 1)
Quarter: 2019Q3

REPORT INFORMATION
  Report Type: Spontaneous
  Country: CN (occurrence: CN)
  Receive Date: 20190918
  Receipt Date: 20190918
  Transmission Date: 20191005
  Serious: Yes (Life-Threatening)
  Sender: FDA-Public Use
  Company Number: PHHY2019CN216191

PATIENT
  Age: 67 Year
  Sex: Female

DRUGS (2)
  1. BORTEZOMIB. [Suspect]
     Active Substance: BORTEZOMIB
     Indication: PLASMA CELL MYELOMA
     Dosage: 1.3 MG/M2, CYCLIC (DAY 1, 4, 8, 11)
     Route: 065
  2. DEXAMETHASONE. [Suspect]
     Active Substance: DEXAMETHASONE
     Indication: PLASMA CELL MYELOMA
     Dosage: 40 MG, CYCLIC (DAY 1, 2, 4, 5, 8, 9, 11, 12)
     Route: 065

REACTIONS (6)
  - Hyponatraemia [Recovering/Resolving]
  - Therapeutic response decreased [Unknown]
  - Hypoglycaemic coma [Recovering/Resolving]
  - Diarrhoea [Recovered/Resolved]
  - Hypopituitarism [Recovering/Resolving]
  - Product use in unapproved indication [Unknown]

NARRATIVE: CASE EVENT DATE: 2012
